FAERS Safety Report 4336040-0 (Version None)
Quarter: 2004Q2

REPORT INFORMATION
  Report Type: 
  Country: None (occurrence: None)
  Receive Date: 20040406
  Receipt Date: 20040329
  Transmission Date: 20050107
  Serious: Yes (Death, Other)
  Sender: FDA-Public Use
  Company Number: 2003188603JP

PATIENT
  Age: 79 Year
  Sex: Male

DRUGS (6)
  1. CABERGOLINE [Suspect]
     Indication: PARKINSON'S DISEASE
     Dosage: ORAL
     Route: 048
     Dates: start: 20021009, end: 20031201
  2. NEODOPASOL (BENSERAZIDE HYDROCHLORIDE) [Concomitant]
  3. NORVASC [Concomitant]
  4. SELOKEN [Concomitant]
  5. LONGES [Concomitant]
  6. EUGLUCON (GLIBENCLAMIDE) [Concomitant]

REACTIONS (1)
  - INTERSTITIAL LUNG DISEASE [None]
